FAERS Safety Report 7259878-9 (Version None)
Quarter: 2011Q1

REPORT INFORMATION
  Report Type: 
  Country: None (occurrence: None)
  Receive Date: 20110130
  Receipt Date: 20101027
  Transmission Date: 20110831
  Serious: No
  Sender: FDA-Public Use
  Company Number: US-ABBOTT-10P-163-0664738-00

PATIENT
  Sex: Male
  Weight: 63.56 kg

DRUGS (7)
  1. HUMIRA [Suspect]
     Indication: CROHN'S DISEASE
     Route: 058
     Dates: start: 20100627, end: 20100826
  2. NEXIUM [Concomitant]
     Indication: GASTROOESOPHAGEAL REFLUX DISEASE
  3. LIALDA [Concomitant]
     Indication: PROCTITIS
  4. AZATHIOPRIN [Concomitant]
     Indication: PROCTITIS
     Dosage: 1.5 EVERY 2 DAYS
     Route: 048
  5. HUMIRA [Suspect]
     Indication: COLITIS ULCERATIVE
     Route: 058
     Dates: start: 20100901
  6. LIALDA [Concomitant]
     Indication: COLITIS ULCERATIVE
  7. IMURAN [Concomitant]
     Indication: PRODUCT USED FOR UNKNOWN INDICATION

REACTIONS (8)
  - HAEMATOCHEZIA [None]
  - DRUG INEFFECTIVE [None]
  - CROHN'S DISEASE [None]
  - MUCOUS STOOLS [None]
  - INJECTION SITE PAIN [None]
  - DIARRHOEA [None]
  - COLITIS ULCERATIVE [None]
  - PROCTITIS [None]
